FAERS Safety Report 9059973 (Version 1)
Quarter: 2013Q1

REPORT INFORMATION
  Report Type: Spontaneous
  Country: US (occurrence: None)
  Receive Date: 20130207
  Receipt Date: 20130207
  Transmission Date: 20140127
  Serious: Yes (Hospitalization)
  Sender: FDA-Public Use
  Company Number: None

PATIENT
  Sex: Male
  Weight: 34.3 kg

DRUGS (4)
  1. MERCAPTOPURINE [Suspect]
     Dates: end: 20121223
  2. METHOTREXATE [Suspect]
     Dates: end: 20121217
  3. PREDNISONE [Suspect]
     Dates: end: 20121221
  4. VINCRISTINE SULFATE [Suspect]
     Dates: end: 20130114

REACTIONS (8)
  - Neutropenia [None]
  - Pyrexia [None]
  - Epistaxis [None]
  - Thrombocytopenia [None]
  - Arthralgia [None]
  - Contusion [None]
  - Petechiae [None]
  - Leukaemia [None]
